FAERS Safety Report 10101815 (Version 2)
Quarter: 2014Q2

REPORT INFORMATION
  Report Type: Spontaneous
  Country: US (occurrence: US)
  Receive Date: 20140424
  Receipt Date: 20140610
  Transmission Date: 20141212
  Serious: Yes (Death, Hospitalization, Other)
  Sender: FDA-Public Use
  Company Number: US-009507513-1404USA012643

PATIENT
  Sex: Male
  Weight: 65.76 kg

DRUGS (1)
  1. JANUVIA [Suspect]
     Indication: TYPE 2 DIABETES MELLITUS
     Dosage: 25 MG, QD
     Route: 048
     Dates: start: 2011, end: 20130207

REACTIONS (21)
  - Pancreatic carcinoma metastatic [Fatal]
  - Metastases to liver [Unknown]
  - Intestinal obstruction [Unknown]
  - Gastroenterostomy [Recovering/Resolving]
  - Device malfunction [Unknown]
  - Atrial fibrillation [Unknown]
  - Hypotension [Unknown]
  - Bradycardia [Unknown]
  - Anaemia [Unknown]
  - Coronary artery bypass [Unknown]
  - Cardiac pacemaker insertion [Unknown]
  - Pancreatitis [Unknown]
  - Renal failure acute [Unknown]
  - Renal failure chronic [Not Recovered/Not Resolved]
  - Colon operation [Unknown]
  - Cholelithiasis [Unknown]
  - Aortic calcification [Unknown]
  - Prostatomegaly [Unknown]
  - Cardiac murmur [Unknown]
  - Arthritis [Unknown]
  - Hypothyroidism [Unknown]
